FAERS Safety Report 15398511 (Version 1)
Quarter: 2018Q3

REPORT INFORMATION
  Report Type: Spontaneous
  Country: FR (occurrence: FR)
  Receive Date: 20180918
  Receipt Date: 20180918
  Transmission Date: 20181010
  Serious: Yes (Other)
  Sender: FDA-Public Use
  Company Number: PHHY2018FR100546

PATIENT
  Age: 79 Year
  Sex: Female
  Weight: 39.8 kg

DRUGS (3)
  1. VALACICLOVIR SANDOZ [Suspect]
     Active Substance: VALACYCLOVIR HYDROCHLORIDE
     Dosage: 2 DF, QD
     Route: 065
     Dates: start: 20180907
  2. VALACICLOVIR SANDOZ [Suspect]
     Active Substance: VALACYCLOVIR HYDROCHLORIDE
     Indication: UVEITIS
     Dosage: 2 DF, TID
     Route: 065
  3. DEXAFREE [Concomitant]
     Active Substance: DEXAMETHASONE SODIUM PHOSPHATE
     Indication: PRODUCT USED FOR UNKNOWN INDICATION
     Dosage: UNK
     Route: 065

REACTIONS (3)
  - Nightmare [Recovered/Resolved]
  - Hallucination [Recovered/Resolved]
  - Monoplegia [Recovered/Resolved]

NARRATIVE: CASE EVENT DATE: 20180906
